FAERS Safety Report 13997945 (Version 1)
Quarter: 2017Q3

REPORT INFORMATION
  Report Type: Spontaneous
  Country: CA (occurrence: CA)
  Receive Date: 20170921
  Receipt Date: 20170921
  Transmission Date: 20171128
  Serious: Yes (Life-Threatening, Hospitalization, Other)
  Sender: FDA-Public Use
  Company Number: CA-ENDO PHARMACEUTICALS INC-2017-005089

PATIENT
  Age: 56 Year
  Sex: Male

DRUGS (2)
  1. TESTIM [Suspect]
     Active Substance: TESTOSTERONE
     Indication: PRODUCT USED FOR UNKNOWN INDICATION
     Dosage: UNK UNKNOWN, UNKNOWN
     Route: 065
  2. SOMATULINE                         /01330101/ [Suspect]
     Active Substance: LANREOTIDE ACETATE
     Indication: ACROMEGALY
     Dosage: 120 MG, ONCE EVERY 28 DAYS
     Route: 030

REACTIONS (10)
  - Electrocardiogram ST segment elevation [Recovering/Resolving]
  - Hypotension [Recovering/Resolving]
  - Chest discomfort [Recovering/Resolving]
  - Acute myocardial infarction [Recovering/Resolving]
  - Myocardial infarction [Recovering/Resolving]
  - Condition aggravated [Recovering/Resolving]
  - Epigastric discomfort [Recovering/Resolving]
  - Anaphylactic reaction [Recovering/Resolving]
  - Dysphagia [Recovering/Resolving]
  - Presyncope [Recovering/Resolving]
